FAERS Safety Report 8292470-6 (Version None)
Quarter: 2012Q2

REPORT INFORMATION
  Report Type: 
  Country: None (occurrence: None)
  Receive Date: 20120417
  Receipt Date: 20111025
  Transmission Date: 20120825
  Serious: No
  Sender: FDA-Public Use
  Company Number: US-ASTRAZENECA-2011SE44783

PATIENT
  Age: 65 Year
  Sex: Female
  Weight: 73.5 kg

DRUGS (4)
  1. NEXIUM [Suspect]
     Route: 048
  2. ALBUTEROL [Concomitant]
  3. AZITHROMYCIN [Concomitant]
  4. METHYLPREDNISOLONE [Concomitant]

REACTIONS (5)
  - PARANASAL SINUS HYPERSECRETION [None]
  - MALAISE [None]
  - DYSPNOEA EXERTIONAL [None]
  - ASTHMA [None]
  - COUGH [None]
